FAERS Safety Report 26051892 (Version 1)
Quarter: 2025Q4

REPORT INFORMATION
  Report Type: Report from Study
  Country: US (occurrence: US)
  Receive Date: 20251117
  Receipt Date: 20251117
  Transmission Date: 20260118
  Serious: Yes (Other)
  Sender: ABBVIE
  Company Number: US-ABBVIE-6548616

PATIENT
  Age: 56 Year
  Sex: Male

DRUGS (1)
  1. VENCLEXTA [Suspect]
     Active Substance: VENETOCLAX
     Indication: Mantle cell lymphoma
     Dosage: STRENGTH: 100 MG / 1 EA
     Route: 048

REACTIONS (3)
  - Cerebrovascular accident [Unknown]
  - Memory impairment [Unknown]
  - Device related infection [Unknown]

NARRATIVE: CASE EVENT DATE: 20250401
